FAERS Safety Report 9292252 (Version 1)
Quarter: 2013Q1

REPORT INFORMATION
  Report Type: Spontaneous
  Country: US (occurrence: None)
  Receive Date: 20121214
  Receipt Date: 20121214
  Transmission Date: 20140127
  Serious: Yes (Other)
  Sender: FDA-Public Use
  Company Number: US-009646

PATIENT
  Age: 42 Year
  Sex: Female

DRUGS (3)
  1. TRANEXAMIC ACID [Suspect]
     Indication: MENORRHAGIA
     Dosage: 2 TABLETS BY MOUTH THREE TIMES A DAY
     Route: 048
     Dates: start: 20120926, end: 201209
  2. VITAMIN D NOS [Concomitant]
  3. IRON [Concomitant]

REACTIONS (5)
  - Chest discomfort [None]
  - Dyspnoea [None]
  - Urticaria [None]
  - Throat tightness [None]
  - Oropharyngeal pain [None]
